FAERS Safety Report 4596714-3 (Version None)
Quarter: 2005Q1

REPORT INFORMATION
  Report Type: 
  Country: None (occurrence: None)
  Receive Date: 20050302
  Receipt Date: 20040310
  Transmission Date: 20050727
  Serious: Yes (Disabling)
  Sender: FDA-Public Use
  Company Number: FR-GLAXOSMITHKLINE-B0326103A

PATIENT
  Age: 16 Year
  Sex: Female

DRUGS (7)
  1. CLAMOXYL [Suspect]
     Indication: ILL-DEFINED DISORDER
     Dosage: 2G PER DAY
     Route: 065
  2. MIVACRON [Suspect]
     Dosage: 4MG PER DAY
     Route: 042
     Dates: start: 20010706, end: 20010706
  3. ATARAX [Suspect]
     Route: 065
     Dates: start: 20010706
  4. SOLU-MEDROL [Suspect]
     Dosage: 40MG PER DAY
     Route: 042
     Dates: start: 20010706, end: 20010706
  5. PRODAFALGAN [Suspect]
     Dosage: 2G PER DAY
     Route: 042
     Dates: start: 20010706, end: 20010706
  6. DIPRIVAN [Suspect]
     Dosage: 100MG PER DAY
     Route: 042
     Dates: start: 20010706, end: 20010706
  7. ALFENTANIL [Suspect]
     Dosage: 1.5MG PER DAY
     Route: 042
     Dates: start: 20010706, end: 20010706

REACTIONS (5)
  - BRADYCARDIA [None]
  - BRONCHOSPASM [None]
  - COMA [None]
  - CYANOSIS [None]
  - VENTRICULAR FIBRILLATION [None]
